FAERS Safety Report 21235860 (Version 1)
Quarter: 2022Q3

REPORT INFORMATION
  Report Type: Spontaneous
  Country: US (occurrence: US)
  Receive Date: 20220821
  Receipt Date: 20220821
  Transmission Date: 20221026
  Serious: Yes (Hospitalization, Other)
  Sender: FDA-Public Use
  Company Number: US-BRISTOL-MYERS SQUIBB COMPANY-2022-088594

PATIENT
  Age: 56 Year
  Sex: Male
  Weight: 129.72 kg

DRUGS (1)
  1. POMALYST [Suspect]
     Active Substance: POMALIDOMIDE
     Indication: Product used for unknown indication
     Dosage: 21D ON 7D OFF
     Route: 048

REACTIONS (3)
  - Sepsis [Unknown]
  - Pneumonia [Unknown]
  - Tooth disorder [Unknown]
